FAERS Safety Report 21631398 (Version 10)
Quarter: 2023Q2

REPORT INFORMATION
  Report Type: Spontaneous
  Country: US (occurrence: US)
  Receive Date: 20221123
  Receipt Date: 20230623
  Transmission Date: 20230722
  Serious: Yes (Other)
  Sender: FDA-Public Use
  Company Number: US-GLAXOSMITHKLINE-US2022AMR168923

PATIENT

DRUGS (1)
  1. ZEJULA [Suspect]
     Active Substance: NIRAPARIB
     Indication: Genital neoplasm malignant female
     Dosage: 100 MG, QD

REACTIONS (8)
  - Recurrent cancer [Unknown]
  - Nausea [Recovering/Resolving]
  - Pruritus [Not Recovered/Not Resolved]
  - Fatigue [Unknown]
  - Constipation [Recovering/Resolving]
  - Dry skin [Unknown]
  - Myalgia [Unknown]
  - Product use in unapproved indication [Unknown]
